FAERS Safety Report 7819847-4 (Version None)
Quarter: 2011Q4

REPORT INFORMATION
  Report Type: 
  Country: None (occurrence: None)
  Receive Date: 20111018
  Receipt Date: 20110811
  Transmission Date: 20120403
  Serious: No
  Sender: FDA-Public Use
  Company Number: US-ASTRAZENECA-2011SE48469

PATIENT
  Age: 52 Year
  Sex: Female

DRUGS (7)
  1. METOCLOPRAMIDE [Concomitant]
  2. SYMBICORT [Suspect]
     Dosage: 80+4.5 MCG 2 PUFFS 2 TIMES A DAY
     Route: 055
  3. NEXIUM [Suspect]
     Route: 048
  4. OMEPRAZOLE [Suspect]
     Route: 048
  5. LISINOPRIL AND HYDROCHLOROTHIAZIDE [Concomitant]
  6. HYDROXYZINE HYDROCHLORIDE [Concomitant]
  7. PREDNISONE [Concomitant]

REACTIONS (6)
  - DYSPHAGIA [None]
  - COLON ADENOMA [None]
  - ACCESSORY LIVER LOBE [None]
  - ABDOMINAL MASS [None]
  - AORTIC ARTERIOSCLEROSIS [None]
  - POLYPECTOMY [None]
